FAERS Safety Report 7229751-0 (Version None)
Quarter: 2011Q1

REPORT INFORMATION
  Report Type: 
  Country: None (occurrence: None)
  Receive Date: 20110117
  Receipt Date: 20110112
  Transmission Date: 20110831
  Serious: Yes (Hospitalization)
  Sender: FDA-Public Use
  Company Number: US-ABBOTT-11P-163-0696950-00

PATIENT
  Sex: Female
  Weight: 55.842 kg

DRUGS (2)
  1. HUMIRA [Suspect]
     Indication: RHEUMATOID ARTHRITIS
     Dates: start: 20030101
  2. AMLODIPINE [Concomitant]
     Indication: HYPERTENSION

REACTIONS (3)
  - VISUAL IMPAIRMENT [None]
  - ARTERIAL OCCLUSIVE DISEASE [None]
  - INJECTION SITE PAIN [None]
